FAERS Safety Report 6007453-6 (Version None)
Quarter: 2008Q4

REPORT INFORMATION
  Report Type: 
  Country: None (occurrence: None)
  Receive Date: 20081217
  Receipt Date: 20080421
  Transmission Date: 20090506
  Serious: No
  Sender: FDA-Public Use
  Company Number: US-ASTRAZENECA-2008UW08162

PATIENT
  Age: 61 Year
  Sex: Male
  Weight: 88.5 kg

DRUGS (8)
  1. CRESTOR [Suspect]
     Indication: BLOOD CHOLESTEROL INCREASED
     Route: 048
     Dates: start: 20080328
  2. NIACIN [Concomitant]
  3. ASPIRIN [Concomitant]
  4. VITAMIN E [Concomitant]
  5. METFORMIN HCL [Concomitant]
  6. JANUVIA [Concomitant]
  7. ATENOLOL [Concomitant]
  8. LOTREL [Concomitant]

REACTIONS (1)
  - BLOOD URINE PRESENT [None]
